FAERS Safety Report 6493925-7 (Version None)
Quarter: 2009Q4

REPORT INFORMATION
  Report Type: 
  Country: None (occurrence: None)
  Receive Date: 20091214
  Receipt Date: 20081124
  Transmission Date: 20100525
  Serious: No
  Sender: FDA-Public Use
  Company Number: US-BRISTOL-MYERS SQUIBB COMPANY-14418685

PATIENT
  Age: 67 Year
  Sex: Female
  Weight: 77 kg

DRUGS (4)
  1. ABILIFY [Suspect]
     Dates: start: 20080101
  2. ANESTHESIA [Suspect]
  3. AMBIEN [Concomitant]
  4. OXYCONTIN [Concomitant]

REACTIONS (6)
  - BREAST PAIN [None]
  - CHEST PAIN [None]
  - DIZZINESS [None]
  - DYSPHAGIA [None]
  - DYSPNOEA [None]
  - OROPHARYNGEAL PAIN [None]
